FAERS Safety Report 5860356-X (Version None)
Quarter: 2008Q3

REPORT INFORMATION
  Report Type: 
  Country: None (occurrence: None)
  Receive Date: 20080827
  Receipt Date: 20080122
  Transmission Date: 20090109
  Serious: No
  Sender: FDA-Public Use
  Company Number: US-ABBOTT-07P-163-0414993-00

PATIENT
  Sex: Female
  Weight: 92 kg

DRUGS (7)
  1. NIASPAN [Suspect]
     Indication: BLOOD CHOLESTEROL INCREASED
     Route: 048
     Dates: start: 20070815, end: 20070824
  2. THYROID PILL [Concomitant]
     Indication: THYROID DISORDER
  3. ZOLPIDEM TARTRATE [Concomitant]
     Indication: INSOMNIA
     Dosage: 5MG 1/2 TAB
     Route: 048
  4. ASPIRIN [Concomitant]
     Indication: CARDIOVASCULAR EVENT PROPHYLAXIS
  5. FISH OIL [Concomitant]
     Indication: SUPPLEMENTATION THERAPY
  6. LINUM USITATISSIMUM SEED OIL [Concomitant]
     Indication: SUPPLEMENTATION THERAPY
  7. CALCIUM [Concomitant]
     Indication: MINERAL SUPPLEMENTATION

REACTIONS (10)
  - ALOPECIA [None]
  - BLOOD URINE PRESENT [None]
  - CHROMATURIA [None]
  - FEELING HOT [None]
  - FLUSHING [None]
  - HEADACHE [None]
  - PALPITATIONS [None]
  - PRURITUS [None]
  - SENSORY DISTURBANCE [None]
  - VISION BLURRED [None]
